FAERS Safety Report 24960348 (Version 2)
Quarter: 2025Q1

REPORT INFORMATION
  Report Type: Spontaneous
  Country: CA (occurrence: CA)
  Receive Date: 20250212
  Receipt Date: 20250331
  Transmission Date: 20250409
  Serious: Yes (Life-Threatening, Hospitalization, Other)
  Sender: SANOFI AVENTIS
  Company Number: CA-SA-2025SA041015

PATIENT
  Age: 10 Year
  Sex: Female
  Weight: 23.5 kg

DRUGS (6)
  1. ALEMTUZUMAB [Suspect]
     Active Substance: ALEMTUZUMAB
     Indication: Surgical preconditioning
     Dosage: 4.3 MG, QD
     Route: 042
     Dates: start: 20231026, end: 20231029
  2. CYCLOPHOSPHAMIDE [Suspect]
     Active Substance: CYCLOPHOSPHAMIDE
     Indication: Surgical preconditioning
     Dosage: 250 MG, QD
     Route: 042
     Dates: start: 20231025, end: 20231028
  3. FLUDARABINE [Suspect]
     Active Substance: FLUDARABINE PHOSPHATE
     Indication: Surgical preconditioning
     Dosage: 33 MG, QD
     Route: 042
     Dates: start: 20231025, end: 20231029
  4. DIPHENHYDRAMINE [Concomitant]
     Active Substance: DIPHENHYDRAMINE
     Dosage: 22 MG, Q4H
     Route: 042
     Dates: start: 20231026
  5. FAMOTIDINE [Concomitant]
     Active Substance: FAMOTIDINE
     Dosage: 11 MG, TID
     Route: 042
     Dates: start: 20231024
  6. ONDANSETRON [Concomitant]
     Active Substance: ONDANSETRON
     Dosage: 4 MG, BID
     Route: 042
     Dates: start: 20251025

REACTIONS (1)
  - Aplastic anaemia [Recovered/Resolved]

NARRATIVE: CASE EVENT DATE: 20231027
